FAERS Safety Report 17168817 (Version 2)
Quarter: 2019Q4

REPORT INFORMATION
  Report Type: Report from Study
  Country: JP (occurrence: JP)
  Receive Date: 20191218
  Receipt Date: 20191220
  Transmission Date: 20200122
  Serious: Yes (Other)
  Sender: FDA-Public Use
  Company Number: JP-ACTELION-A-CH2018-170459

PATIENT
  Age: 82 Year
  Sex: Female

DRUGS (11)
  1. OPALMON [Concomitant]
     Active Substance: LIMAPROST
  2. TAKEPRON [Concomitant]
     Active Substance: LANSOPRAZOLE
  3. PIMOBENDAN [Interacting]
     Active Substance: PIMOBENDAN
     Dosage: 5 MG, QD
     Route: 048
  4. CELECOX [Concomitant]
     Active Substance: CELECOXIB
  5. OPSUMIT [Suspect]
     Active Substance: MACITENTAN
     Indication: PULMONARY ARTERIAL HYPERTENSION
     Dosage: 10 MG, QD
     Route: 048
     Dates: start: 20171024
  6. SPIRONOLACTONE. [Concomitant]
     Active Substance: SPIRONOLACTONE
  7. DIART [Concomitant]
     Active Substance: AZOSEMIDE
  8. ADCIRCA [Interacting]
     Active Substance: TADALAFIL
     Indication: PULMONARY ARTERIAL HYPERTENSION
     Dosage: 40 MG, QD
     Route: 048
  9. OXYGEN. [Concomitant]
     Active Substance: OXYGEN
  10. PIMOBENDAN [Interacting]
     Active Substance: PIMOBENDAN
     Indication: RIGHT VENTRICULAR FAILURE
     Dosage: 2.5 MG, QD
     Route: 048
  11. MAINTATE [Concomitant]
     Active Substance: BISOPROLOL FUMARATE

REACTIONS (16)
  - Epistaxis [Not Recovered/Not Resolved]
  - Musculoskeletal stiffness [Recovering/Resolving]
  - Anaemia [Not Recovered/Not Resolved]
  - Oedema peripheral [Recovered/Resolved]
  - Platelet count decreased [Not Recovered/Not Resolved]
  - Orthopnoea [Recovered/Resolved]
  - Cardiac failure [Recovered/Resolved]
  - Dyspnoea exertional [Recovered/Resolved]
  - Red blood cell count decreased [Not Recovered/Not Resolved]
  - Drug interaction [Unknown]
  - Cardiac dysfunction [Recovered/Resolved]
  - Haemoglobin decreased [Not Recovered/Not Resolved]
  - Condition aggravated [Recovering/Resolving]
  - Sclerema [Recovering/Resolving]
  - Blood pressure decreased [Recovered/Resolved]
  - Haematocrit decreased [Not Recovered/Not Resolved]

NARRATIVE: CASE EVENT DATE: 20180215
